FAERS Safety Report 18870332 (Version 1)
Quarter: 2021Q1

REPORT INFORMATION
  Report Type: Spontaneous
  Country: TH (occurrence: TH)
  Receive Date: 20210210
  Receipt Date: 20210210
  Transmission Date: 20210420
  Serious: Yes (Other)
  Sender: FDA-Public Use
  Company Number: TH-LUPIN PHARMACEUTICALS INC.-2021-01668

PATIENT
  Age: 29 Year
  Sex: Male

DRUGS (8)
  1. CIPROFLOXACIN. [Concomitant]
     Active Substance: CIPROFLOXACIN
     Indication: LIMB INJURY
     Dosage: UNK
     Route: 065
  2. PIPERACILLIN AND TAZOBACTAM [Concomitant]
     Active Substance: PIPERACILLIN SODIUM\TAZOBACTAM SODIUM
     Indication: LIMB INJURY
     Dosage: UNK
     Route: 065
  3. VANCOMYCIN [Suspect]
     Active Substance: VANCOMYCIN
     Indication: LIMB INJURY
     Dosage: UNK
     Route: 065
  4. TRIMETHOPRIM SULFAMETHOXAZOLE [Concomitant]
     Active Substance: SULFAMETHOXAZOLE\TRIMETHOPRIM
     Indication: LIMB INJURY
     Dosage: UNK
     Route: 065
  5. CIPROFLOXACIN. [Concomitant]
     Active Substance: CIPROFLOXACIN
     Indication: OSTEOMYELITIS
  6. PIPERACILLIN AND TAZOBACTAM [Concomitant]
     Active Substance: PIPERACILLIN SODIUM\TAZOBACTAM SODIUM
     Indication: OSTEOMYELITIS
  7. VANCOMYCIN [Suspect]
     Active Substance: VANCOMYCIN
     Indication: OSTEOMYELITIS
  8. TRIMETHOPRIM SULFAMETHOXAZOLE [Concomitant]
     Active Substance: SULFAMETHOXAZOLE\TRIMETHOPRIM
     Indication: OSTEOMYELITIS

REACTIONS (1)
  - Drug reaction with eosinophilia and systemic symptoms [Unknown]
